FAERS Safety Report 24596017 (Version 3)
Quarter: 2024Q4

REPORT INFORMATION
  Report Type: Report from Study
  Country: KR (occurrence: KR)
  Receive Date: 20241109
  Receipt Date: 20241202
  Transmission Date: 20250115
  Serious: Yes (Hospitalization)
  Sender: ABBVIE
  Company Number: KR-ABBVIE-5992919

PATIENT
  Age: 80 Year
  Sex: Male
  Weight: 61 kg

DRUGS (59)
  1. VENCLEXTA [Suspect]
     Active Substance: VENETOCLAX
     Indication: Acute myeloid leukaemia
     Route: 048
     Dates: start: 20241008, end: 20241008
  2. VENCLEXTA [Suspect]
     Active Substance: VENETOCLAX
     Indication: Acute myeloid leukaemia
     Route: 048
     Dates: start: 20241009, end: 20241009
  3. VENCLEXTA [Suspect]
     Active Substance: VENETOCLAX
     Indication: Acute myeloid leukaemia
     Route: 048
     Dates: start: 20241010, end: 20241109
  4. VENCLEXTA [Suspect]
     Active Substance: VENETOCLAX
     Indication: Acute myeloid leukaemia
     Route: 048
     Dates: start: 20241007, end: 20241007
  5. VENCLEXTA [Suspect]
     Active Substance: VENETOCLAX
     Indication: Acute myeloid leukaemia
     Route: 048
     Dates: start: 20241112
  6. SILODOSIN [Concomitant]
     Active Substance: SILODOSIN
     Indication: Benign prostatic hyperplasia
     Route: 048
     Dates: start: 20191204
  7. ALDACTONE [Concomitant]
     Active Substance: SPIRONOLACTONE
     Indication: Prophylaxis
     Dosage: FILM COATED TAB 25MG
     Route: 048
     Dates: start: 20241113, end: 20241113
  8. HERBALS [Concomitant]
     Active Substance: HERBALS
     Indication: Dyspepsia
     Route: 048
     Dates: start: 20241001
  9. K CAB [Concomitant]
     Indication: Reflux laryngitis
     Dosage: 50 MG
     Route: 048
     Dates: start: 20241001
  10. DIFLUCAN [Concomitant]
     Active Substance: FLUCONAZOLE
     Indication: Antifungal prophylaxis
     Dosage: 50MG
     Route: 048
     Dates: start: 20241104, end: 20241114
  11. PENIRAMIN [Concomitant]
     Indication: Premedication
     Dosage: FREQUENCY TEXT: PRN
     Route: 042
     Dates: start: 20241015
  12. HYDROCHLOROTHIAZIDE\TELMISARTAN [Concomitant]
     Active Substance: HYDROCHLOROTHIAZIDE\TELMISARTAN
     Indication: Hypertension
     Dosage: 80/12.5MG
     Route: 048
     Dates: start: 20160225
  13. MELATONIN [Concomitant]
     Active Substance: MELATONIN
     Indication: Insomnia
     Dosage: PR
     Route: 048
     Dates: start: 20191204, end: 20241110
  14. NICORANDIL [Concomitant]
     Active Substance: NICORANDIL
     Indication: Aortic stenosis
     Route: 048
     Dates: start: 20241004, end: 20241030
  15. TACENOL [Concomitant]
     Indication: Pyrexia
     Dosage: 8HOURS ER TAB 650MG
     Route: 048
     Dates: start: 20241113, end: 20241113
  16. CONBLOC [Concomitant]
     Indication: Myocardial ischaemia
     Dosage: 1.25 MG
     Route: 048
     Dates: start: 20241004, end: 20241030
  17. Fexuclue [Concomitant]
     Indication: Gastritis prophylaxis
     Route: 048
     Dates: start: 20240913, end: 20241012
  18. CRESTOR [Concomitant]
     Active Substance: ROSUVASTATIN CALCIUM
     Indication: Hyperlipidaemia
     Route: 048
     Dates: start: 20160225, end: 20241030
  19. OMAPONE [Concomitant]
     Indication: Lethargy
     Route: 042
     Dates: start: 20241111, end: 20241114
  20. UMECLIDINIUM BROMIDE\VILANTEROL TRIFENATATE [Concomitant]
     Active Substance: UMECLIDINIUM BROMIDE\VILANTEROL TRIFENATATE
     Indication: Dyspnoea
     Dosage: FREQUENCY TEXT: PRN?62.5 ELLIPTA
     Route: 055
     Dates: start: 20240913, end: 20241012
  21. NOXAFIL [Concomitant]
     Active Substance: POSACONAZOLE
     Indication: Antifungal prophylaxis
     Dosage: GASTRO RESISTANT 100MG
     Route: 048
     Dates: start: 20241007, end: 20241020
  22. NOXAFIL [Concomitant]
     Active Substance: POSACONAZOLE
     Indication: Antifungal prophylaxis
     Dosage: GASTRO RESISTANT 100MG
     Route: 048
     Dates: start: 20241028, end: 20241028
  23. paracin [Concomitant]
     Indication: Prophylaxis
     Dosage: 75 ML
     Route: 042
     Dates: start: 20241111, end: 20241112
  24. ZOLPIDEM TARTRATE [Concomitant]
     Active Substance: ZOLPIDEM TARTRATE
     Indication: Insomnia
     Dosage: FREQUENCY TEXT: PRN
     Route: 048
     Dates: start: 20191204, end: 20241027
  25. FURIX [Concomitant]
     Indication: Prophylaxis
     Dosage: 40MG
     Route: 048
     Dates: start: 20241113, end: 20241113
  26. ZOLPIDEM TARTRATE [Concomitant]
     Active Substance: ZOLPIDEM TARTRATE
     Indication: Insomnia
     Dosage: FREQUENCY TEXT: PRN
     Route: 048
     Dates: start: 20241028, end: 20241110
  27. Citopcin [Concomitant]
     Indication: Infection prophylaxis
     Dosage: 250 MG
     Route: 048
     Dates: start: 20241007, end: 20241020
  28. MAGNESIUM HYDROXIDE [Concomitant]
     Active Substance: MAGNESIUM HYDROXIDE
     Indication: Constipation
     Route: 048
     Dates: start: 20241106, end: 20241107
  29. MAGNESIUM HYDROXIDE [Concomitant]
     Active Substance: MAGNESIUM HYDROXIDE
     Indication: Constipation
     Route: 048
     Dates: start: 20241108
  30. MAGNESIUM HYDROXIDE [Concomitant]
     Active Substance: MAGNESIUM HYDROXIDE
     Indication: Constipation
     Dosage: TIME INTERVAL: 0.33333333 DAYS
     Route: 048
     Dates: start: 20241028, end: 20241104
  31. Bronpass [Concomitant]
     Indication: Chronic obstructive pulmonary disease
     Route: 048
     Dates: start: 20240913, end: 20241012
  32. LASIX [Concomitant]
     Active Substance: FUROSEMIDE
     Indication: Prophylaxis
     Dosage: TIME INTERVAL: AS NECESSARY
     Route: 042
     Dates: start: 20241015
  33. NORVASC [Concomitant]
     Active Substance: AMLODIPINE BESYLATE
     Indication: Hypertension
     Dosage: 5 MG
     Route: 048
     Dates: start: 20160225, end: 20241030
  34. CALCIUM POLYSTYRENE SULFONATE [Concomitant]
     Active Substance: CALCIUM POLYSTYRENE SULFONATE
     Indication: Prophylaxis
     Dosage: TIME INTERVAL: AS NECESSARY: SUSPENSION
     Route: 048
     Dates: start: 20241031, end: 20241104
  35. LEVOCARE CR [Concomitant]
     Indication: Chronic obstructive pulmonary disease
     Route: 048
     Dates: start: 20240913, end: 20241012
  36. AMARYL [Concomitant]
     Active Substance: GLIMEPIRIDE
     Indication: Diabetes mellitus
     Route: 048
     Dates: start: 20241101
  37. MEGACE F [Concomitant]
     Indication: Decreased appetite
     Dosage: SUSPENSION
     Route: 048
     Dates: start: 20241001
  38. XANAX [Concomitant]
     Active Substance: ALPRAZOLAM
     Indication: Anxiety
     Dosage: FREQUENCY TEXT: 0.5 DAYS?0.25MG
     Route: 048
     Dates: start: 20240930, end: 20241110
  39. VIDAZA [Concomitant]
     Active Substance: AZACITIDINE
     Indication: Acute myeloid leukaemia
     Dosage: 100 MG
     Route: 042
     Dates: start: 20241104, end: 20241108
  40. VIDAZA [Concomitant]
     Active Substance: AZACITIDINE
     Indication: Acute myeloid leukaemia
     Route: 042
     Dates: start: 20241007, end: 20241016
  41. Citra [Concomitant]
     Indication: Lethargy
     Dosage: TIME INTERVAL: 0.33333333 DAYS
     Route: 048
     Dates: start: 20241108, end: 20241108
  42. METFORMIN HYDROCHLORIDE\VILDAGLIPTIN [Concomitant]
     Active Substance: METFORMIN HYDROCHLORIDE\VILDAGLIPTIN
     Indication: Diabetes mellitus
     Dosage: 50/850MG
     Route: 048
     Dates: start: 20160225, end: 20241014
  43. METFORMIN HYDROCHLORIDE\VILDAGLIPTIN [Concomitant]
     Active Substance: METFORMIN HYDROCHLORIDE\VILDAGLIPTIN
     Indication: Diabetes mellitus
     Dosage: 50/850MG
     Route: 048
     Dates: start: 20241015
  44. NORPIN [Concomitant]
     Indication: Hypotension
     Dosage: TIME INTERVAL: AS NECESSARY: UNIT DOSE : UKMG
     Route: 042
     Dates: start: 20241108, end: 20241111
  45. CEFTAZIDIME [Concomitant]
     Active Substance: CEFTAZIDIME
     Indication: Infection prophylaxis
     Dosage: TIME INTERVAL: 0.33333333 DAYS
     Route: 042
     Dates: start: 20241113, end: 20241115
  46. CEFTAZIDIME [Concomitant]
     Active Substance: CEFTAZIDIME
     Indication: Infection prophylaxis
     Dosage: TIME INTERVAL: 0.33333333 DAYS
     Route: 042
     Dates: start: 20241116
  47. DULACKHAN EASY [Concomitant]
     Indication: Constipation
     Dosage: FREQUENCY TEXT: PRN
     Route: 048
     Dates: start: 20241028, end: 20241104
  48. PIPERACILLIN SODIUM\TAZOBACTAM SODIUM [Concomitant]
     Active Substance: PIPERACILLIN SODIUM\TAZOBACTAM SODIUM
     Indication: Pyrexia
     Route: 042
     Dates: start: 20241108
  49. PIPERACILLIN SODIUM\TAZOBACTAM SODIUM [Concomitant]
     Active Substance: PIPERACILLIN SODIUM\TAZOBACTAM SODIUM
     Indication: Pyrexia
     Dosage: TIME INTERVAL: 0.33333333 DAYS
     Route: 042
     Dates: start: 20241109, end: 20241113
  50. TYLENOL [Concomitant]
     Active Substance: ACETAMINOPHEN
     Indication: Pyrexia
     Dosage: 8HOURS ER TAB 650MG
     Route: 048
     Dates: start: 20241108, end: 20241109
  51. COUGH SYR [Concomitant]
     Indication: Chronic obstructive pulmonary disease
     Dosage: TIME INTERVAL: 0.33333333 DAYS
     Route: 048
     Dates: start: 20241111
  52. METFORMIN HYDROCHLORIDE [Concomitant]
     Active Substance: METFORMIN HYDROCHLORIDE
     Indication: Diabetes mellitus
     Route: 048
     Dates: start: 20241029, end: 20241111
  53. LINAGLIPTIN [Concomitant]
     Active Substance: LINAGLIPTIN
     Indication: Diabetes mellitus
     Route: 048
     Dates: start: 20241112
  54. ACETYLCYSTEINE [Concomitant]
     Active Substance: ACETYLCYSTEINE
     Indication: Chronic obstructive pulmonary disease
     Dosage: TIME INTERVAL: 0.33333333 DAYS: INJ 100MG/ML 6ML
     Route: 042
     Dates: start: 20241109, end: 20241109
  55. ERDOSTEINE [Concomitant]
     Active Substance: ERDOSTEINE
     Indication: Chronic obstructive pulmonary disease
     Route: 048
     Dates: start: 20241110, end: 20241110
  56. ERDOSTEINE [Concomitant]
     Active Substance: ERDOSTEINE
     Indication: Chronic obstructive pulmonary disease
     Dosage: TIME INTERVAL: 0.33333333 DAYS
     Route: 048
     Dates: start: 20241111
  57. HUMALOG [Concomitant]
     Active Substance: INSULIN LISPRO
     Indication: Diabetes mellitus
     Dosage: 100I.U/ML
     Route: 058
     Dates: start: 20241111
  58. PHOSTEN [Concomitant]
     Indication: Prophylaxis
     Dosage: 20ML (AMP)(PP)
     Route: 042
     Dates: start: 20241111, end: 20241112
  59. AZELASTINE HYDROCHLORIDE [Concomitant]
     Active Substance: AZELASTINE HYDROCHLORIDE
     Indication: Dyspnoea
     Route: 048
     Dates: start: 20241108

REACTIONS (1)
  - Hyponatraemia [Recovered/Resolved]

NARRATIVE: CASE EVENT DATE: 20241028
